FAERS Safety Report 6910672-5 (Version None)
Quarter: 2010Q3

REPORT INFORMATION
  Report Type: 
  Country: None (occurrence: None)
  Receive Date: 20100806
  Receipt Date: 20100727
  Transmission Date: 20110219
  Serious: Yes (Hospitalization, Disabling)
  Sender: FDA-Public Use
  Company Number: FR-JNJFOC-20100300611

PATIENT
  Age: 62 Year
  Sex: Male

DRUGS (13)
  1. REMICADE [Suspect]
     Indication: CROHN'S DISEASE
     Route: 042
  2. REMICADE [Suspect]
     Dosage: 2ND INFUSION
     Route: 042
  3. IMUREL [Suspect]
     Indication: CROHN'S DISEASE
     Route: 042
  4. NEXIUM [Concomitant]
  5. SMECTA [Concomitant]
  6. ACETAMINOPHEN [Concomitant]
  7. BACTRIM [Concomitant]
  8. INNOHEP [Concomitant]
  9. HUMALOG [Concomitant]
  10. LANTUS [Concomitant]
  11. PERIKABIVEN [Concomitant]
  12. CERNEVIT-12 [Concomitant]
  13. TRACITRANS [Concomitant]

REACTIONS (7)
  - HYPOALBUMINAEMIA [None]
  - LYMPHOPENIA [None]
  - OEDEMA PERIPHERAL [None]
  - PNEUMOCYSTIS JIROVECI PNEUMONIA [None]
  - PNEUMONIA [None]
  - PULMONARY EMBOLISM [None]
  - RESPIRATORY FAILURE [None]
